FAERS Safety Report 21385098 (Version 8)
Quarter: 2023Q1

REPORT INFORMATION
  Report Type: Report from Study
  Country: AU (occurrence: None)
  Receive Date: 20220928
  Receipt Date: 20230227
  Transmission Date: 20230418
  Serious: Yes (Hospitalization)
  Sender: FDA-Public Use
  Company Number: AU-ROCHE-3186560

PATIENT
  Age: 81 Year
  Sex: Male
  Weight: 81 kg

DRUGS (26)
  1. PIRFENIDONE [Suspect]
     Active Substance: PIRFENIDONE
     Indication: Idiopathic pulmonary fibrosis
     Dosage: ON 20/SEP/2019, HE RECEIVED MOST RECENT DOSE OF PIRFENIDONE (801 MG) ADMIN PRIOR SAE.
     Route: 048
     Dates: start: 201806
  2. NINTEDANIB [Suspect]
     Active Substance: NINTEDANIB
     Indication: Idiopathic pulmonary fibrosis
     Dosage: ON 21/SEP/2022, HE RECEIVED MOST RECENT DOSE OF NINTEDANIB(100 MG) ADMIN PRIOR SAE.
     Route: 048
     Dates: start: 20200518
  3. PROLIA [Concomitant]
     Active Substance: DENOSUMAB
     Indication: Osteoporosis
     Route: 030
     Dates: start: 201706
  4. THYROXINE [Concomitant]
     Active Substance: LEVOTHYROXINE
     Indication: Hypothyroidism
     Dosage: DOSE 100 UG
     Route: 048
     Dates: start: 2000
  5. CODEINE [Concomitant]
     Active Substance: CODEINE
     Indication: Headache
     Route: 048
     Dates: start: 202002
  6. PANADOL [Concomitant]
     Active Substance: ACETAMINOPHEN
     Indication: Headache
     Route: 048
     Dates: start: 2005
  7. TESTOSTERONE [Concomitant]
     Active Substance: TESTOSTERONE
     Indication: Androgen deficiency
     Dosage: DOSE 1 OTHER
     Route: 061
     Dates: start: 20200721, end: 20220921
  8. LOPERAMIDE [Concomitant]
     Active Substance: LOPERAMIDE
     Indication: Diarrhoea
     Route: 048
     Dates: start: 20201001, end: 20220926
  9. OXYGEN [Concomitant]
     Active Substance: OXYGEN
     Indication: Dyspnoea
     Dosage: DOSE 2 OTHER
     Route: 055
     Dates: start: 20200918
  10. QUESTRAN [Concomitant]
     Active Substance: CHOLESTYRAMINE
     Indication: Diarrhoea
     Route: 048
     Dates: start: 202106
  11. BISOLVON [Concomitant]
     Active Substance: BROMHEXINE HYDROCHLORIDE
     Indication: Cough
     Route: 048
     Dates: start: 20210819, end: 20220929
  12. FISH OIL [Concomitant]
     Active Substance: FISH OIL
     Route: 048
     Dates: start: 20210820, end: 20220926
  13. TEMAZEPAM [Concomitant]
     Active Substance: TEMAZEPAM
     Route: 048
     Dates: start: 20210819
  14. ONDANSETRON [Concomitant]
     Active Substance: ONDANSETRON
     Indication: Nausea
     Route: 042
     Dates: start: 20210820
  15. GASTROGEL (AUSTRALIA) [Concomitant]
     Indication: Gastrooesophageal reflux disease
     Route: 048
     Dates: start: 20210825
  16. DOCUSATE SODIUM\SENNOSIDES A AND B [Concomitant]
     Active Substance: DOCUSATE SODIUM\SENNOSIDES A AND B
     Route: 048
     Dates: start: 20210821
  17. NIZATIDINE [Concomitant]
     Active Substance: NIZATIDINE
     Indication: Gastrooesophageal reflux disease
     Route: 048
     Dates: start: 20210826
  18. DOMPERIDONE [Concomitant]
     Active Substance: DOMPERIDONE
     Indication: Nausea
     Route: 048
     Dates: start: 20210825
  19. MIDODRINE [Concomitant]
     Active Substance: MIDODRINE
     Indication: Hypotension
     Route: 048
     Dates: start: 20210918
  20. FLUDROCORTISONE [Concomitant]
     Active Substance: FLUDROCORTISONE
     Indication: Hypotension
     Dosage: DOSE 100 UG
     Route: 048
     Dates: start: 20210919
  21. PREDNISOLONE [Concomitant]
     Active Substance: PREDNISOLONE
     Route: 048
     Dates: start: 20220115
  22. SPIRONOLACTONE [Concomitant]
     Active Substance: SPIRONOLACTONE
     Indication: Ejection fraction decreased
     Route: 048
     Dates: start: 20220225
  23. METAMUCIL [Concomitant]
     Active Substance: PLANTAGO SEED
     Indication: Diarrhoea
     Dosage: DOSE 2 OTHER
     Route: 048
     Dates: start: 20220605
  24. DUTASTERIDE\TAMSULOSIN HYDROCHLORIDE [Concomitant]
     Active Substance: DUTASTERIDE\TAMSULOSIN HYDROCHLORIDE
     Indication: Benign prostatic hyperplasia
     Dosage: DOSE 500 UG
     Route: 048
     Dates: start: 20220531, end: 20221222
  25. ACETAMINOPHEN [Concomitant]
     Active Substance: ACETAMINOPHEN
     Indication: Musculoskeletal chest pain
     Route: 048
     Dates: start: 202208
  26. ACETAMINOPHEN [Concomitant]
     Active Substance: ACETAMINOPHEN
     Indication: Headache
     Dates: start: 20220917

REACTIONS (1)
  - Urosepsis [Recovered/Resolved]

NARRATIVE: CASE EVENT DATE: 20220917
